FAERS Safety Report 14599828 (Version 1)
Quarter: 2018Q1

REPORT INFORMATION
  Report Type: Spontaneous
  Country: US (occurrence: US)
  Receive Date: 20180304
  Receipt Date: 20180304
  Transmission Date: 20180509
  Serious: Yes (Hospitalization)
  Sender: FDA-Public Use
  Company Number: None

PATIENT
  Age: 37 Year
  Sex: Female
  Weight: 57.15 kg

DRUGS (2)
  1. SOMA [Concomitant]
     Active Substance: CARISOPRODOL
  2. PAXIL [Suspect]
     Active Substance: PAROXETINE HYDROCHLORIDE
     Indication: FIBROMYALGIA
     Route: 048
     Dates: start: 20090427, end: 20090527

REACTIONS (7)
  - Memory impairment [None]
  - Impaired work ability [None]
  - Hypoacusis [None]
  - Visual impairment [None]
  - Dysstasia [None]
  - Fatigue [None]
  - Mental impairment [None]

NARRATIVE: CASE EVENT DATE: 20090521
